FAERS Safety Report 4930695-5 (Version None)
Quarter: 2006Q1

REPORT INFORMATION
  Report Type: 
  Country: None (occurrence: None)
  Receive Date: 20060227
  Receipt Date: 20060217
  Transmission Date: 20060701
  Serious: Yes (Disabling, Other)
  Sender: FDA-Public Use
  Company Number: TPA2006A00304

PATIENT
  Sex: Female

DRUGS (1)
  1. ROZEREM [Suspect]
     Dosage: PER ORAL
     Route: 048

REACTIONS (3)
  - BLINDNESS TRANSIENT [None]
  - VISUAL ACUITY REDUCED [None]
  - VISUAL DISTURBANCE [None]
